FAERS Safety Report 4584727-7 (Version None)
Quarter: 2005Q1

REPORT INFORMATION
  Report Type: 
  Country: None (occurrence: None)
  Receive Date: 20050214
  Receipt Date: 20040920
  Transmission Date: 20050727
  Serious: Yes (Death, Hospitalization)
  Sender: FDA-Public Use
  Company Number: 05-052

PATIENT
  Sex: Female

DRUGS (3)
  1. DEXAMETHASONE [Suspect]
     Indication: MULTIPLE MYELOMA
     Dosage: 140 MG
     Dates: start: 20011021, end: 20011022
  2. GENASENSE [Concomitant]
  3. VIOXX [Concomitant]

REACTIONS (6)
  - HAEMODIALYSIS [None]
  - MULTIPLE MYELOMA [None]
  - PAIN [None]
  - RENAL FAILURE [None]
  - THIRST [None]
  - TIBIA FRACTURE [None]
